FAERS Safety Report 5405331-4 (Version None)
Quarter: 2007Q3

REPORT INFORMATION
  Report Type: 
  Country: None (occurrence: None)
  Receive Date: 20070803
  Receipt Date: 20070726
  Transmission Date: 20080115
  Serious: Yes (Disabling)
  Sender: FDA-Public Use
  Company Number: US-ELI_LILLY_AND_COMPANY-US200707006489

PATIENT
  Age: 53 Year
  Sex: Female

DRUGS (2)
  1. FORTEO [Suspect]
     Indication: OSTEOPOROSIS
     Dates: start: 20060214
  2. TRAMADOL HCL [Concomitant]

REACTIONS (16)
  - ANXIETY [None]
  - BACK PAIN [None]
  - DISABILITY [None]
  - FALL [None]
  - FEAR [None]
  - FOOT FRACTURE [None]
  - GAIT DISTURBANCE [None]
  - IMMOBILE [None]
  - JOINT INJURY [None]
  - JOINT SPRAIN [None]
  - LIMB DISCOMFORT [None]
  - MUSCLE SPASMS [None]
  - MYALGIA [None]
  - SLEEP DISORDER [None]
  - STRESS [None]
  - TENSION HEADACHE [None]
